FAERS Safety Report 11693167 (Version 3)
Quarter: 2016Q2

REPORT INFORMATION
  Report Type: Spontaneous
  Country: US (occurrence: US)
  Receive Date: 20151103
  Receipt Date: 20160503
  Transmission Date: 20160815
  Serious: Yes (Other)
  Sender: FDA-Public Use
  Company Number: ADR-2015-01574

PATIENT
  Age: 58 Year
  Sex: Male

DRUGS (2)
  1. BACLOFEN. [Suspect]
     Active Substance: BACLOFEN
     Dosage: 350 MCG/DAY
     Route: 037
  2. BACLOFEN. [Suspect]
     Active Substance: BACLOFEN
     Dosage: 380 MCG/DAY
     Route: 037

REACTIONS (6)
  - Muscle spasticity [Unknown]
  - Medical device site infection [Unknown]
  - Serratia infection [Unknown]
  - Serratia test positive [Unknown]
  - Wound dehiscence [Unknown]
  - Medical device site cellulitis [Unknown]
